FAERS Safety Report 20132008 (Version 1)
Quarter: 2021Q4

REPORT INFORMATION
  Report Type: Spontaneous
  Country: US (occurrence: None)
  Receive Date: 20211130
  Receipt Date: 20211130
  Transmission Date: 20220304
  Serious: No
  Sender: FDA-Public Use
  Company Number: None

PATIENT

DRUGS (1)
  1. TESTOSTERONE [Suspect]
     Active Substance: TESTOSTERONE

REACTIONS (6)
  - Rash [None]
  - Blister [None]
  - Feeling hot [None]
  - Skin fissures [None]
  - Pruritus [None]
  - Skin haemorrhage [None]
